FAERS Safety Report 7385899-1 (Version None)
Quarter: 2011Q1

REPORT INFORMATION
  Report Type: 
  Country: None (occurrence: None)
  Receive Date: 20110331
  Receipt Date: 20110328
  Transmission Date: 20110831
  Serious: No
  Sender: FDA-Public Use
  Company Number: US-PFIZER INC-2010005908

PATIENT
  Sex: Male

DRUGS (2)
  1. ZOLOFT [Suspect]
     Dosage: 75 TO 200 MG
  2. EFFEXOR XR [Suspect]
     Indication: DEPRESSION
     Dosage: 75 MG TO START AND GRADUALLY INCREASED TO A DOSE OF 300 MG DAILY
     Route: 048
     Dates: start: 20050101

REACTIONS (1)
  - DRUG INEFFECTIVE [None]
